FAERS Safety Report 6054315-4 (Version None)
Quarter: 2009Q1

REPORT INFORMATION
  Report Type: 
  Country: None (occurrence: None)
  Receive Date: 20090127
  Receipt Date: 20090121
  Transmission Date: 20090719
  Serious: Yes (Life-Threatening, Hospitalization)
  Sender: FDA-Public Use
  Company Number: US-CELGENEUS-163-50794-09011124

PATIENT
  Age: 80 Year
  Sex: Male
  Weight: 60 kg

DRUGS (24)
  1. VIDAZA [Suspect]
     Indication: MYELODYSPLASTIC SYNDROME
     Route: 058
     Dates: start: 20090112, end: 20090116
  2. ACETAMINOPHEN [Concomitant]
     Indication: PAIN
     Route: 048
  3. ALBUTEROL S04 0.5% [Concomitant]
     Indication: DRUG USE FOR UNKNOWN INDICATION
     Route: 048
  4. BUPROPION HCL [Concomitant]
     Indication: DEPRESSION
     Route: 048
  5. CODEINE SUL TAB [Concomitant]
     Indication: COUGH
     Dosage: 100MG/5ML
     Route: 048
  6. FORMOTEROL FUMARATE [Concomitant]
     Indication: DRUG USE FOR UNKNOWN INDICATION
     Route: 048
  7. IPRATROPIUM BROMIDE [Concomitant]
     Route: 048
  8. LISINOPRIL [Concomitant]
     Indication: DRUG USE FOR UNKNOWN INDICATION
     Route: 048
  9. MEGESTROL ACETATE [Concomitant]
     Indication: DRUG USE FOR UNKNOWN INDICATION
     Dosage: 200MG/5ML
     Route: 048
  10. METOPROLOL TARTRATE [Concomitant]
     Indication: BLOOD PRESSURE
     Route: 048
  11. MIRTAZAPINE [Concomitant]
     Indication: SLEEP DISORDER
     Route: 048
  12. MOMETASONE FUROATE [Concomitant]
     Indication: DRUG USE FOR UNKNOWN INDICATION
     Route: 048
  13. NITROGLYCERIN [Concomitant]
     Indication: CHEST PAIN
     Dosage: 0.2 MG/HR
     Route: 062
  14. NITROGLYCERIN [Concomitant]
     Route: 060
  15. OMEPRAZOLE EC [Concomitant]
     Route: 048
  16. ONDANSETRON [Concomitant]
     Indication: CHEMOTHERAPY
     Route: 048
  17. XOPENEX [Concomitant]
     Indication: DRUG USE FOR UNKNOWN INDICATION
  18. COMPAZINE [Concomitant]
     Indication: NAUSEA
  19. LACTOBACILLUS [Concomitant]
     Indication: DRUG USE FOR UNKNOWN INDICATION
  20. VANCOMYCIN [Concomitant]
  21. LEVAQUIN [Concomitant]
     Indication: DRUG USE FOR UNKNOWN INDICATION
     Dates: start: 20090101
  22. ADVAIR DISKUS 100/50 [Concomitant]
     Indication: DRUG USE FOR UNKNOWN INDICATION
  23. CORMAX [Concomitant]
     Indication: DRUG USE FOR UNKNOWN INDICATION
  24. COMBIVENT [Concomitant]
     Indication: DRUG USE FOR UNKNOWN INDICATION

REACTIONS (8)
  - ASTHENIA [None]
  - CEREBROVASCULAR ACCIDENT [None]
  - CLOSTRIDIUM DIFFICILE COLITIS [None]
  - NAUSEA [None]
  - RENAL FAILURE ACUTE [None]
  - TACHYCARDIA [None]
  - THROMBOCYTOPENIA [None]
  - VOMITING [None]
